FAERS Safety Report 8240276-6 (Version None)
Quarter: 2012Q1

REPORT INFORMATION
  Report Type: 
  Country: None (occurrence: None)
  Receive Date: 20120328
  Receipt Date: 20120328
  Transmission Date: 20120608
  Serious: Yes (Hospitalization)
  Sender: FDA-Public Use
  Company Number: None

PATIENT
  Age: 75 Year
  Sex: Male
  Weight: 95.9 kg

DRUGS (2)
  1. MOBIC [Suspect]
  2. PRADAXA [Concomitant]

REACTIONS (2)
  - RENAL FAILURE ACUTE [None]
  - DEEP VEIN THROMBOSIS [None]
